FAERS Safety Report 21595795 (Version 1)
Quarter: 2022Q4

REPORT INFORMATION
  Report Type: Spontaneous
  Country: JP (occurrence: JP)
  Receive Date: 20221115
  Receipt Date: 20221115
  Transmission Date: 20230113
  Serious: Yes (Other)
  Sender: FDA-Public Use
  Company Number: JP-CHUGAI-2022019920

PATIENT
  Age: 62 Year
  Sex: Female

DRUGS (2)
  1. GAZYVA [Suspect]
     Active Substance: OBINUTUZUMAB
     Indication: Follicular lymphoma
     Dosage: 1000MG/DAY
     Route: 042
     Dates: start: 20220511
  2. BENDAMUSTINE HYDROCHLORIDE [Suspect]
     Active Substance: BENDAMUSTINE HYDROCHLORIDE
     Indication: Follicular lymphoma
     Dosage: 90MG/M2/DAY
     Route: 041
     Dates: start: 20220511

REACTIONS (3)
  - Cytopenia [Recovered/Resolved]
  - Decreased immune responsiveness [Recovered/Resolved]
  - Vomiting [Not Recovered/Not Resolved]
